FAERS Safety Report 21507015 (Version 1)
Quarter: 2022Q4

REPORT INFORMATION
  Report Type: Report from Study
  Country: US (occurrence: US)
  Receive Date: 20221026
  Receipt Date: 20221026
  Transmission Date: 20230112
  Serious: No
  Sender: FDA-Public Use
  Company Number: US-ABBVIE-4147352

PATIENT
  Age: 56 Year
  Sex: Male

DRUGS (2)
  1. HUMIRA [Suspect]
     Active Substance: ADALIMUMAB
     Indication: Colitis ulcerative
     Route: 058
  2. HUMIRA [Suspect]
     Active Substance: ADALIMUMAB
     Dosage: 40 MG
     Route: 058

REACTIONS (9)
  - Abdominal pain upper [Unknown]
  - Sinus disorder [Unknown]
  - COVID-19 [Recovered/Resolved]
  - COVID-19 [Unknown]
  - Feeling hot [Unknown]
  - Abdominal discomfort [Unknown]
  - Insomnia [Unknown]
  - Nerve compression [Unknown]
  - Therapeutic product effect incomplete [Unknown]

NARRATIVE: CASE EVENT DATE: 20201201
